FAERS Safety Report 25122876 (Version 1)
Quarter: 2025Q1

REPORT INFORMATION
  Report Type: Report from Study
  Country: AR (occurrence: AR)
  Receive Date: 20250326
  Receipt Date: 20250326
  Transmission Date: 20250408
  Serious: Yes (Other)
  Sender: NOVARTIS
  Company Number: AR-002147023-NVSC2025AR049209

PATIENT
  Sex: Female

DRUGS (5)
  1. KISQALI [Suspect]
     Active Substance: RIBOCICLIB
     Indication: Breast cancer metastatic
     Dosage: 600 MG, QD, (3 TABLETS IN THE AFTERNOON)
     Route: 048
     Dates: start: 20241017
  2. LETROZOLE [Suspect]
     Active Substance: LETROZOLE
     Indication: Breast cancer metastatic
     Dosage: UNK, QD, (IN THE MORNING)
     Route: 048
     Dates: start: 20241017
  3. MAGNESIUM [Concomitant]
     Active Substance: MAGNESIUM
     Indication: Product used for unknown indication
     Route: 065
  4. Moringa [Concomitant]
     Indication: Product used for unknown indication
     Route: 065
  5. CASTOR OIL [Concomitant]
     Active Substance: CASTOR OIL
     Indication: Product used for unknown indication
     Route: 065

REACTIONS (3)
  - Multiple sclerosis [Not Recovered/Not Resolved]
  - Metastases to bone [Recovering/Resolving]
  - Lumbar vertebral fracture [Unknown]
